FAERS Safety Report 14557851 (Version 5)
Quarter: 2022Q4

REPORT INFORMATION
  Report Type: Spontaneous
  Country: US (occurrence: US)
  Receive Date: 20180221
  Receipt Date: 20221202
  Transmission Date: 20230113
  Serious: Yes (Hospitalization, Other)
  Sender: FDA-Public Use
  Company Number: US-PFIZER INC-2017262528

PATIENT
  Age: 65 Year
  Sex: Male
  Weight: 71 kg

DRUGS (9)
  1. RAPAMUNE [Suspect]
     Active Substance: SIROLIMUS
     Indication: Liver transplant
     Dosage: 3 MG, DAILY (3 TABLETS IN THE MORNING)
     Route: 048
     Dates: start: 201605
  2. FOLIC ACID [Concomitant]
     Active Substance: FOLIC ACID
     Dosage: 1 MG, DAILY
     Route: 048
     Dates: start: 20140410
  3. FUROSEMIDE [Concomitant]
     Active Substance: FUROSEMIDE
     Dosage: 40 MG, DAILY
     Route: 048
     Dates: start: 20140410
  4. PANTOPRAZOLE SODIUM [Concomitant]
     Active Substance: PANTOPRAZOLE SODIUM
     Dosage: 40 MG, DAILY
     Route: 048
     Dates: start: 20140410
  5. SPIRONOLACTONE [Concomitant]
     Active Substance: SPIRONOLACTONE
     Dosage: 50 MG, 2X/DAY
     Route: 048
     Dates: start: 20140410
  6. VITAMIN B12 [Concomitant]
     Active Substance: CYANOCOBALAMIN
     Dosage: 1000 UG, DAILY
     Route: 048
     Dates: start: 20140410
  7. PROTONIX [Concomitant]
     Active Substance: PANTOPRAZOLE SODIUM
     Indication: Gastric disorder
     Dosage: 40 MG, 1X/DAY
     Route: 048
     Dates: start: 2014
  8. JANUVIA [Concomitant]
     Active Substance: SITAGLIPTIN PHOSPHATE
     Indication: Blood glucose abnormal
     Dosage: 100 MG, 1X/DAY, (AT NIGHT)
     Route: 048
     Dates: start: 2017
  9. INVOKANA [Concomitant]
     Active Substance: CANAGLIFLOZIN
     Indication: Blood glucose abnormal
     Dosage: 100 MG, 1X/DAY, (IN THE MORNING)
     Route: 048
     Dates: start: 2017

REACTIONS (14)
  - Spontaneous bacterial peritonitis [Unknown]
  - Disease recurrence [Unknown]
  - Helicobacter infection [Not Recovered/Not Resolved]
  - Encephalopathy [Unknown]
  - Off label use [Unknown]
  - Transferrin saturation increased [Unknown]
  - Serum ferritin increased [Unknown]
  - Ceruloplasmin decreased [Unknown]
  - Fatigue [Unknown]
  - Abdominal distension [Unknown]
  - Ammonia increased [Unknown]
  - Iron overload [Not Recovered/Not Resolved]
  - Red blood cell count decreased [Unknown]
  - Rash [Recovering/Resolving]

NARRATIVE: CASE EVENT DATE: 20160501
